FAERS Safety Report 6269811-4 (Version None)
Quarter: 2009Q3

REPORT INFORMATION
  Report Type: 
  Country: None (occurrence: None)
  Receive Date: 20090714
  Receipt Date: 20090706
  Transmission Date: 20100115
  Serious: Yes (Other)
  Sender: FDA-Public Use
  Company Number: 2009SP015048

PATIENT
  Age: 37 Year
  Sex: Female

DRUGS (3)
  1. CLARITIN-D 24 HOUR [Suspect]
     Indication: RHINORRHOEA
     Dosage: PO
     Route: 048
  2. CLARITIN-D 24 HOUR [Suspect]
     Indication: SNEEZING
     Dosage: PO
     Route: 048
  3. BIRTH CONTROL PILLS [Concomitant]

REACTIONS (2)
  - LOSS OF CONSCIOUSNESS [None]
  - PALPITATIONS [None]
